FAERS Safety Report 6917194-6 (Version None)
Quarter: 2010Q3

REPORT INFORMATION
  Report Type: 
  Country: None (occurrence: None)
  Receive Date: 20100810
  Receipt Date: 20100730
  Transmission Date: 20110219
  Serious: Yes (Other)
  Sender: FDA-Public Use
  Company Number: IT-TYCO HEALTHCARE/MALLINCKRODT-T201001751

PATIENT

DRUGS (1)
  1. METHADOSE [Suspect]
     Dosage: UNK

REACTIONS (2)
  - ENCEPHALITIS [None]
  - HYDROCEPHALUS [None]
